FAERS Safety Report 7503221-4 (Version None)
Quarter: 2011Q2

REPORT INFORMATION
  Report Type: 
  Country: None (occurrence: None)
  Receive Date: 20110525
  Receipt Date: 20110107
  Transmission Date: 20111010
  Serious: No
  Sender: FDA-Public Use
  Company Number: A0904105A

PATIENT
  Age: 39 Year
  Sex: Female

DRUGS (1)
  1. BACTROBAN [Suspect]
     Dosage: 1APP PER DAY
     Route: 045
     Dates: start: 20110107

REACTIONS (3)
  - HEADACHE [None]
  - SINUS DISORDER [None]
  - ILL-DEFINED DISORDER [None]
